FAERS Safety Report 8994788 (Version 1)
Quarter: 2012Q4

REPORT INFORMATION
  Report Type: Spontaneous
  Country: US (occurrence: None)
  Receive Date: 20121228
  Receipt Date: 20121228
  Transmission Date: 20130627
  Serious: Yes (Hospitalization)
  Sender: FDA-Public Use
  Company Number: None

PATIENT
  Age: 80 Year
  Sex: Male
  Weight: 106.6 kg

DRUGS (1)
  1. PRADAXA [Suspect]
     Indication: HEART DISORDER
     Dosage: 2 per day
     Dates: start: 201107, end: 201206

REACTIONS (1)
  - Incision site haemorrhage [None]
